FAERS Safety Report 9476782 (Version 1)
Quarter: 2013Q3

REPORT INFORMATION
  Report Type: Report from Study
  Country: MX (occurrence: MX)
  Receive Date: 20130826
  Receipt Date: 20130826
  Transmission Date: 20140515
  Serious: Yes (Other)
  Sender: FDA-Public Use
  Company Number: PHHY2013MX092241

PATIENT
  Age: 65 Year
  Sex: Female

DRUGS (5)
  1. ACLASTA [Suspect]
     Indication: OSTEOPOROSIS
     Dosage: 5 MG/100ML, 1 INJECTABLE SOLUTION ANNUAL
     Route: 042
     Dates: start: 201204
  2. ACLASTA [Suspect]
     Dosage: 5 MG/100ML, 1 INJECTABLE SOLUTION ANNUAL
     Route: 042
     Dates: start: 201304
  3. TENORMIN [Concomitant]
     Indication: HYPERTENSION
     Dosage: 0.5 UKN, DAILY
     Dates: start: 2011
  4. FABROVEN [Concomitant]
     Indication: CARDIOVASCULAR DISORDER
     Dosage: 2 UKN, DAILY
  5. ADALAT [Concomitant]
     Indication: HYPERTENSION
     Dosage: 1 UKN, DAILY

REACTIONS (3)
  - Fibula fracture [Recovered/Resolved]
  - Tibia fracture [Recovered/Resolved]
  - Fall [Recovered/Resolved]
